FAERS Safety Report 23684177 (Version 1)
Quarter: 2024Q1

REPORT INFORMATION
  Report Type: Spontaneous
  Country: SE (occurrence: None)
  Receive Date: 20240328
  Receipt Date: 20240328
  Transmission Date: 20240409
  Serious: Yes (Hospitalization)
  Sender: FDA-Public Use
  Company Number: 2024A071071

PATIENT
  Age: 79 Year
  Sex: Male
  Weight: 83 kg

DRUGS (8)
  1. TICAGRELOR [Suspect]
     Active Substance: TICAGRELOR
     Indication: Cardiovascular event prophylaxis
     Route: 048
     Dates: start: 20231205
  2. PLACEBO [Suspect]
     Active Substance: PLACEBO
     Indication: Cardiovascular disorder
     Route: 058
     Dates: start: 20221213
  3. ASPIRIN [Concomitant]
     Active Substance: ASPIRIN
     Dates: start: 20110101
  4. FELODIPINE [Concomitant]
     Active Substance: FELODIPINE
     Dates: start: 20150602
  5. LOSARTAN [Concomitant]
     Active Substance: LOSARTAN
     Dates: start: 20160706
  6. ACETAMINOPHEN [Concomitant]
     Active Substance: ACETAMINOPHEN
     Dates: start: 20160909
  7. ATORVASTATIN [Concomitant]
     Active Substance: ATORVASTATIN
     Dates: start: 20160909
  8. EZETIMIBE [Concomitant]
     Active Substance: EZETIMIBE
     Dates: start: 20211109

REACTIONS (1)
  - Duodenal ulcer [Recovered/Resolved]

NARRATIVE: CASE EVENT DATE: 20240117
